FAERS Safety Report 11090568 (Version 2)
Quarter: 2015Q2

REPORT INFORMATION
  Report Type: Report from Study
  Country: BR (occurrence: BR)
  Receive Date: 20150505
  Receipt Date: 20150601
  Transmission Date: 20150821
  Serious: Yes (Other)
  Sender: FDA-Public Use
  Company Number: PHHY2015BR050165

PATIENT
  Sex: Female
  Weight: 70 kg

DRUGS (5)
  1. IMOSEC [Concomitant]
     Active Substance: LOPERAMIDE
     Indication: PAIN
     Dosage: UNK, PRN (WHEN SHE FELT PAIN)
     Route: 065
  2. MORPHINE [Concomitant]
     Active Substance: MORPHINE
     Indication: PRODUCT USED FOR UNKNOWN INDICATION
     Route: 065
  3. EXELON [Suspect]
     Active Substance: RIVASTIGMINE TARTRATE
     Indication: DEMENTIA ALZHEIMER^S TYPE
     Dosage: 1 DF, (IN THE MORNING) QD
     Route: 048
  4. APRESOLINE HYDROCHLORIDE [Concomitant]
     Active Substance: HYDRALAZINE HYDROCHLORIDE
     Indication: ANGINA PECTORIS
     Dosage: 1 DF, QD (STARTED 10 YEARS AGO)
     Route: 048
  5. NPH INSULIN [Concomitant]
     Active Substance: INSULIN BEEF
     Indication: DIABETES MELLITUS
     Dosage: 1 DF, QD
     Route: 065

REACTIONS (11)
  - Head discomfort [Recovering/Resolving]
  - Memory impairment [Recovering/Resolving]
  - Polyuria [Recovering/Resolving]
  - Feeling abnormal [Not Recovered/Not Resolved]
  - Lower limb fracture [Recovering/Resolving]
  - Haemorrhage [Recovered/Resolved]
  - Nervousness [Not Recovered/Not Resolved]
  - Irritability [Recovering/Resolving]
  - Weight increased [Recovering/Resolving]
  - Restlessness [Recovering/Resolving]
  - Agitation [Recovering/Resolving]

NARRATIVE: CASE EVENT DATE: 201411
